FAERS Safety Report 4976793-1 (Version None)
Quarter: 2006Q2

REPORT INFORMATION
  Report Type: 
  Country: None (occurrence: None)
  Receive Date: 20060413
  Receipt Date: 20060404
  Transmission Date: 20061013
  Serious: Yes (Death)
  Sender: FDA-Public Use
  Company Number: 2006S1000069

PATIENT
  Age: 69 Year
  Sex: Male
  Weight: 83.7 kg

DRUGS (20)
  1. CUBICIN [Suspect]
     Indication: EMBOLISM
     Dosage: 400 MG; Q48H; IV
     Route: 042
     Dates: start: 20060308, end: 20060308
  2. CUBICIN [Suspect]
     Indication: ENDOCARDITIS
     Dosage: 400 MG; Q48H; IV
     Route: 042
     Dates: start: 20060308, end: 20060308
  3. CUBICIN [Suspect]
     Indication: SEPSIS
     Dosage: 400 MG; Q48H; IV
     Route: 042
     Dates: start: 20060308, end: 20060308
  4. CUBICIN [Suspect]
     Indication: SKIN DISORDER
     Dosage: 400 MG; Q48H; IV
     Route: 042
     Dates: start: 20060308, end: 20060308
  5. CUBICIN [Suspect]
     Indication: STAPHYLOCOCCAL BACTERAEMIA
     Dosage: 400 MG; Q48H; IV
     Route: 042
     Dates: start: 20060308, end: 20060308
  6. RIFAMPIN [Concomitant]
  7. VANCOMYCIN [Concomitant]
  8. LEVOFLOXACIN [Concomitant]
  9. CEFTRIAXONE [Concomitant]
  10. TYLENOL (CAPLET) [Concomitant]
  11. AMIODARONE [Concomitant]
  12. CAPTOPRIL [Concomitant]
  13. MORPHINE [Concomitant]
  14. FENTANYL [Concomitant]
  15. INSULIN [Concomitant]
  16. MEMANTINE HCL [Concomitant]
  17. METOCLOPRAMIDE [Concomitant]
  18. BACTROBAN [Concomitant]
  19. PROMETHAZINE [Concomitant]
  20. RIVASTIGMINE [Concomitant]

REACTIONS (1)
  - CARDIO-RESPIRATORY ARREST [None]
